FAERS Safety Report 10651430 (Version 1)
Quarter: 2014Q4

REPORT INFORMATION
  Report Type: Spontaneous
  Country: FR (occurrence: None)
  Receive Date: 20141210
  Receipt Date: 20141210
  Transmission Date: 20150529
  Serious: Yes (Life-Threatening, Other)
  Sender: FDA-Public Use
  Company Number: FR-ZYDUS-005890

PATIENT
  Age: 68 Year
  Sex: Male

DRUGS (1)
  1. OMEPRAZOLE. [Suspect]
     Active Substance: OMEPRAZOLE
     Indication: HIATUS HERNIA

REACTIONS (7)
  - Hypokalaemia [None]
  - Muscle spasms [None]
  - Tetany [None]
  - Hypocalcaemic seizure [None]
  - Tremor [None]
  - Hypomagnesaemia [None]
  - Loss of consciousness [None]
